FAERS Safety Report 6431753-9 (Version None)
Quarter: 2009Q4

REPORT INFORMATION
  Report Type: 
  Country: None (occurrence: None)
  Receive Date: 20091104
  Receipt Date: 20091027
  Transmission Date: 20100525
  Serious: Yes (Death, Other)
  Sender: FDA-Public Use
  Company Number: 2009-192474-NL

PATIENT
  Age: 45 Year
  Sex: Female
  Weight: 66.2252 kg

DRUGS (5)
  1. NUVARING [Suspect]
     Indication: CONTRACEPTION
     Dosage: VAG
     Route: 067
     Dates: start: 20070109, end: 20080321
  2. MAXAIR MDI [Concomitant]
  3. EXCEDRIN (MIGRAINE) [Concomitant]
  4. ADVAIR DISKUS 100/50 [Concomitant]
  5. SINGULAIR [Concomitant]

REACTIONS (16)
  - ASTHMA [None]
  - CARDIO-RESPIRATORY ARREST [None]
  - DEEP VEIN THROMBOSIS [None]
  - DIZZINESS [None]
  - ELECTROMECHANICAL DISSOCIATION [None]
  - FATIGUE [None]
  - HAEMATURIA [None]
  - HYPERSENSITIVITY [None]
  - LIVIDITY [None]
  - MALAISE [None]
  - PULMONARY EMBOLISM [None]
  - RENAL CYST [None]
  - RHINORRHOEA [None]
  - SINUS DISORDER [None]
  - SLUGGISHNESS [None]
  - THROAT IRRITATION [None]
